FAERS Safety Report 6845049-4 (Version None)
Quarter: 2010Q3

REPORT INFORMATION
  Report Type: 
  Country: None (occurrence: None)
  Receive Date: 20100715
  Receipt Date: 20071019
  Transmission Date: 20110219
  Serious: No
  Sender: FDA-Public Use
  Company Number: US-PFIZER INC-2007067868

PATIENT
  Sex: Male
  Weight: 70 kg

DRUGS (8)
  1. CHANTIX [Suspect]
     Indication: SMOKING CESSATION THERAPY
     Dates: start: 20070601
  2. SITAGLIPTIN [Concomitant]
  3. ACTOS [Concomitant]
  4. METFORMIN HCL [Concomitant]
  5. DIAZEPAM [Concomitant]
  6. DOXYCYCLINE [Concomitant]
  7. VYTORIN [Concomitant]
  8. ACETYLSALICYLIC ACID [Concomitant]

REACTIONS (2)
  - BLOOD CREATININE INCREASED [None]
  - CREATININE URINE INCREASED [None]
